FAERS Safety Report 10213084 (Version 1)
Quarter: 2014Q2

REPORT INFORMATION
  Report Type: Spontaneous
  Country: IE (occurrence: IE)
  Receive Date: 20140603
  Receipt Date: 20140603
  Transmission Date: 20141212
  Serious: Yes (Other)
  Sender: FDA-Public Use
  Company Number: IE-AMGEN-IRLSP2014040286

PATIENT
  Age: 67 Year
  Sex: Female

DRUGS (7)
  1. ARANESP [Suspect]
     Indication: NEPHROPATHY
     Dosage: 20 MUG, EVERY 10 DAYS
     Route: 058
  2. DIAMICRON [Concomitant]
  3. LIPITOR [Concomitant]
  4. CAPRIN [Concomitant]
  5. NOVOMIX [Concomitant]
  6. CALCICHEW [Concomitant]
  7. DIOVAN [Concomitant]

REACTIONS (1)
  - Blood iron abnormal [Unknown]
